FAERS Safety Report 16358408 (Version 3)
Quarter: 2019Q2

REPORT INFORMATION
  Report Type: Spontaneous
  Country: US (occurrence: US)
  Receive Date: 20190527
  Receipt Date: 20190619
  Transmission Date: 20190711
  Serious: Yes (Other)
  Sender: FDA-Public Use
  Company Number: US-009507513-1905USA009902

PATIENT
  Sex: Female

DRUGS (1)
  1. NEXPLANON [Suspect]
     Active Substance: ETONOGESTREL
     Dosage: 1 IMPLANT
     Route: 059
     Dates: start: 201807, end: 20190612

REACTIONS (4)
  - No adverse event [Unknown]
  - Complication associated with device [Recovered/Resolved]
  - Device embolisation [Recovered/Resolved]
  - Device dislocation [Recovered/Resolved]
